FAERS Safety Report 6639918-8 (Version None)
Quarter: 2010Q1

REPORT INFORMATION
  Report Type: 
  Country: None (occurrence: None)
  Receive Date: 20100318
  Receipt Date: 20100310
  Transmission Date: 20100710
  Serious: Yes (Hospitalization)
  Sender: FDA-Public Use
  Company Number: US-KINGPHARMUSA00001-K201000189

PATIENT
  Age: 39 Year
  Sex: Female
  Weight: 58.957 kg

DRUGS (5)
  1. FLECTOR [Suspect]
     Indication: MUSCLE STRAIN
     Dosage: 1/3 PATCH, SINGLE
     Route: 061
     Dates: start: 20100216, end: 20100217
  2. LIBRAX [Concomitant]
     Indication: IRRITABLE BOWEL SYNDROME
     Dosage: UNK
  3. PHENERGAN HCL [Concomitant]
     Indication: IRRITABLE BOWEL SYNDROME
     Dosage: UNK
  4. LORTAB [Concomitant]
     Indication: HEADACHE
     Dosage: UNK
  5. LORTAB [Concomitant]
     Indication: TEMPOROMANDIBULAR JOINT SYNDROME

REACTIONS (7)
  - BLOOD PRESSURE INCREASED [None]
  - FATIGUE [None]
  - HEART RATE INCREASED [None]
  - HEPATIC ENZYME INCREASED [None]
  - MALAISE [None]
  - PAIN [None]
  - WHITE BLOOD CELL COUNT DECREASED [None]
